FAERS Safety Report 10170903 (Version 3)
Quarter: 2014Q3

REPORT INFORMATION
  Report Type: Spontaneous
  Country: US (occurrence: US)
  Receive Date: 20140514
  Receipt Date: 20140710
  Transmission Date: 20150326
  Serious: Yes (Death, Hospitalization, Other)
  Sender: FDA-Public Use
  Company Number: US-009507513-1405USA004079

PATIENT
  Age: 23 Year
  Sex: Female

DRUGS (5)
  1. METHERGINE [Concomitant]
     Active Substance: METHYLERGONOVINE MALEATE
  2. NORCO [Concomitant]
     Active Substance: ACETAMINOPHEN\HYDROCODONE BITARTRATE
  3. IRON (UNSPECIFIED) (+) MINERALS (UNSPECIFIED) (+) VITAMINS (UNSPECIFIE [Concomitant]
     Active Substance: IRON\MINERALS\VITAMINS
  4. TYLENOL [Concomitant]
     Active Substance: ACETAMINOPHEN
     Dosage: EVERY 6 HS
     Route: 048
  5. NEXPLANON [Suspect]
     Active Substance: ETONOGESTREL
     Indication: CONTRACEPTION
     Dosage: 1 SINGLE ROD
     Route: 059
     Dates: start: 20140116, end: 20140303

REACTIONS (16)
  - Vitamin D deficiency [Not Recovered/Not Resolved]
  - Breast pain [Unknown]
  - Induced labour [Recovered/Resolved]
  - Oligohydramnios [Unknown]
  - White blood cell count decreased [Unknown]
  - Unintended pregnancy [Recovered/Resolved]
  - Abdominal pain [Unknown]
  - Mean cell haemoglobin decreased [Unknown]
  - Headache [Unknown]
  - Nausea [Unknown]
  - Mean cell haemoglobin concentration decreased [Unknown]
  - Haematocrit decreased [Unknown]
  - Anaemia [Unknown]
  - Haemoglobin decreased [Unknown]
  - Foetal death [Fatal]
  - Red cell distribution width increased [Unknown]

NARRATIVE: CASE EVENT DATE: 2014
